FAERS Safety Report 5786483-3 (Version None)
Quarter: 2008Q2

REPORT INFORMATION
  Report Type: 
  Country: None (occurrence: None)
  Receive Date: 20080624
  Receipt Date: 20080617
  Transmission Date: 20081010
  Serious: Yes (Hospitalization)
  Sender: FDA-Public Use
  Company Number: US-PFIZER INC-2008040879

PATIENT
  Age: 52 Year
  Sex: Male
  Weight: 77.3 kg

DRUGS (11)
  1. DILANTIN [Suspect]
     Dates: end: 20080421
  2. TEMODAR [Suspect]
     Indication: GLIOBLASTOMA MULTIFORME
     Route: 048
     Dates: start: 20080317, end: 20080428
  3. HYDROXYZINE [Concomitant]
  4. ZETIA [Concomitant]
  5. COREG [Concomitant]
  6. PREVACID [Concomitant]
  7. SYNTHROID [Concomitant]
  8. PERCOCET [Concomitant]
     Dosage: TEXT:5/325-FREQ:Q6H PRN
  9. CLOTRIMAZOLE [Concomitant]
     Dosage: TEXT:5X-FREQ:QD
  10. ZOCOR [Concomitant]
  11. KEPPRA [Concomitant]

REACTIONS (5)
  - HYPERSENSITIVITY [None]
  - RASH ERYTHEMATOUS [None]
  - RASH PRURITIC [None]
  - RENAL INFARCT [None]
  - SPLENIC INFARCTION [None]
